FAERS Safety Report 25008082 (Version 1)
Quarter: 2025Q1

REPORT INFORMATION
  Report Type: Spontaneous
  Country: SI (occurrence: SI)
  Receive Date: 20250225
  Receipt Date: 20250225
  Transmission Date: 20250409
  Serious: Yes (Other)
  Sender: AMGEN
  Company Number: SI-AMGEN-SVNSP2024258072

PATIENT
  Age: 80 Year
  Sex: Female

DRUGS (2)
  1. PROLIA [Suspect]
     Active Substance: DENOSUMAB
     Indication: Product used for unknown indication
     Route: 065
  2. LETROZOLE [Suspect]
     Active Substance: LETROZOLE
     Indication: Hormone receptor positive breast cancer
     Route: 065
     Dates: start: 2018

REACTIONS (9)
  - Malignant neoplasm progression [Recovering/Resolving]
  - Metastases to stomach [Recovering/Resolving]
  - Hormone receptor positive breast cancer [Recovering/Resolving]
  - Weight decreased [Recovering/Resolving]
  - Dysphagia [Recovering/Resolving]
  - Anaemia [Recovering/Resolving]
  - Dyspnoea [Recovering/Resolving]
  - Carbohydrate antigen 15-3 increased [Recovering/Resolving]
  - Oesophageal hypomotility [Not Recovered/Not Resolved]

NARRATIVE: CASE EVENT DATE: 20221001
